FAERS Safety Report 5698805-2 (Version None)
Quarter: 2008Q2

REPORT INFORMATION
  Report Type: 
  Country: None (occurrence: None)
  Receive Date: 20080403
  Receipt Date: 20080328
  Transmission Date: 20081010
  Serious: Yes (Death, Hospitalization, Other)
  Sender: FDA-Public Use
  Company Number: 008-C5013-07110365

PATIENT
  Age: 64 Year
  Sex: Female
  Weight: 68 kg

DRUGS (12)
  1. CC-5013 (LENALIDOMIDE) (CAPSULES) [Suspect]
     Indication: MULTIPLE MYELOMA
     Dosage: 25 MG, EVERY 21 DAYS FOR 28 DAYS, ORAL, 15 MG, ORAL
     Route: 048
     Dates: start: 20071023, end: 20071106
  2. CC-5013 (LENALIDOMIDE) (CAPSULES) [Suspect]
     Indication: MULTIPLE MYELOMA
     Dosage: 25 MG, EVERY 21 DAYS FOR 28 DAYS, ORAL, 15 MG, ORAL
     Route: 048
     Dates: start: 20071120, end: 20071124
  3. DEXAMETHASONE TAB [Suspect]
     Indication: MULTIPLE MYELOMA
     Dosage: 40 MG, DAILY DAYS 1-4, 9-12, 17-20, ORAL, 4 MG, ONCE DAILY, ORAL
     Route: 048
     Dates: start: 20071031, end: 20071103
  4. DEXAMETHASONE TAB [Suspect]
     Indication: MULTIPLE MYELOMA
     Dosage: 40 MG, DAILY DAYS 1-4, 9-12, 17-20, ORAL, 4 MG, ONCE DAILY, ORAL
     Route: 048
     Dates: start: 20071106, end: 20071127
  5. PACK RED CELLS (BLOOD CELLS, PACKED HUMAN) [Concomitant]
  6. OXYCONTIN [Concomitant]
  7. NORTRIPTYLINE HCL [Concomitant]
  8. HALOPERIDOL [Concomitant]
  9. MAGMIN (MAGNESIUM ASPARTATE) [Concomitant]
  10. TRANEXAMIC ACID (TRANEXAMIC ACID) [Concomitant]
  11. MORPHINE [Concomitant]
  12. PANTOPRAZOLE SODIUM [Concomitant]

REACTIONS (50)
  - ACTIVATED PARTIAL THROMBOPLASTIN TIME PROLONGED [None]
  - ASTHENIA [None]
  - ATRIAL FIBRILLATION [None]
  - BLOOD BICARBONATE DECREASED [None]
  - BLOOD CALCIUM DECREASED [None]
  - BLOOD CHLORIDE INCREASED [None]
  - BLOOD CREATININE INCREASED [None]
  - BLOOD MAGNESIUM DECREASED [None]
  - BLOOD PHOSPHORUS DECREASED [None]
  - BLOOD UREA INCREASED [None]
  - BONE MARROW DISORDER [None]
  - BONE PAIN [None]
  - CLOSTRIDIUM DIFFICILE TOXIN TEST POSITIVE [None]
  - CONFUSIONAL STATE [None]
  - COUGH [None]
  - DECUBITUS ULCER [None]
  - DEEP VEIN THROMBOSIS [None]
  - DEHYDRATION [None]
  - DEPRESSION [None]
  - DIARRHOEA [None]
  - DYSPNOEA [None]
  - FATIGUE [None]
  - GENERAL PHYSICAL HEALTH DETERIORATION [None]
  - GLOMERULAR FILTRATION RATE DECREASED [None]
  - HAEMATOCRIT DECREASED [None]
  - HAEMOGLOBIN DECREASED [None]
  - HYPOALBUMINAEMIA [None]
  - HYPOKALAEMIA [None]
  - HYPOTENSION [None]
  - INTERNATIONAL NORMALISED RATIO INCREASED [None]
  - LYMPHOCYTE COUNT DECREASED [None]
  - MEAN CELL HAEMOGLOBIN INCREASED [None]
  - MEAN CELL VOLUME [None]
  - MENTAL STATUS CHANGES [None]
  - MOBILITY DECREASED [None]
  - MONOCYTE COUNT DECREASED [None]
  - MULTIPLE MYELOMA [None]
  - NEUROPATHY PERIPHERAL [None]
  - NEUTROPHIL COUNT DECREASED [None]
  - OEDEMA PERIPHERAL [None]
  - OESOPHAGEAL ULCER [None]
  - ORAL CANDIDIASIS [None]
  - PAIN [None]
  - PITTING OEDEMA [None]
  - PROTEIN TOTAL DECREASED [None]
  - PROTHROMBIN TIME PROLONGED [None]
  - RED BLOOD CELL COUNT DECREASED [None]
  - SOMNOLENCE [None]
  - THROMBOCYTOPENIA [None]
  - WHITE BLOOD CELL COUNT DECREASED [None]
